FAERS Safety Report 6445276-4 (Version None)
Quarter: 2009Q4

REPORT INFORMATION
  Report Type: 
  Country: None (occurrence: None)
  Receive Date: 20091118
  Receipt Date: 20090430
  Transmission Date: 20100525
  Serious: Yes (Death, Other)
  Sender: FDA-Public Use
  Company Number: US-PFIZER INC-2009208932

PATIENT
  Age: 17 Year
  Sex: Male
  Weight: 89.34 kg

DRUGS (6)
  1. MORPHINE [Suspect]
     Indication: DRUG ABUSE
     Route: 048
  2. XANAX [Suspect]
     Indication: DRUG ABUSE
     Route: 048
  3. OXYCONTIN [Suspect]
     Indication: DRUG ABUSE
     Route: 048
  4. ALCOHOL [Suspect]
     Indication: DRUG ABUSE
     Route: 048
  5. DEXTROMETHORPHAN [Suspect]
  6. CHLORPHENIRAMINE MALEATE [Suspect]

REACTIONS (2)
  - MULTIPLE DRUG OVERDOSE ACCIDENTAL [None]
  - SUBSTANCE ABUSE [None]
